FAERS Safety Report 18817085 (Version 1)
Quarter: 2021Q1

REPORT INFORMATION
  Report Type: Spontaneous
  Country: US (occurrence: US)
  Receive Date: 20210201
  Receipt Date: 20210201
  Transmission Date: 20210419
  Serious: Yes (Other)
  Sender: FDA-Public Use
  Company Number: US-ROCHE-2699276

PATIENT
  Sex: Male

DRUGS (1)
  1. TECENTRIQ [Suspect]
     Active Substance: ATEZOLIZUMAB
     Indication: SMALL CELL LUNG CANCER
     Route: 065

REACTIONS (14)
  - Neuropathy peripheral [Unknown]
  - Swelling [Unknown]
  - Tooth infection [Unknown]
  - Dehydration [Unknown]
  - Prostatomegaly [Unknown]
  - Emphysema [Unknown]
  - Constipation [Unknown]
  - Pain [Unknown]
  - Chronic obstructive pulmonary disease [Unknown]
  - Hypersomnia [Unknown]
  - Dyspnoea [Unknown]
  - Oedema [Unknown]
  - Insomnia [Unknown]
  - Lymphoma [Unknown]
